FAERS Safety Report 23584073 (Version 1)
Quarter: 2024Q1

REPORT INFORMATION
  Report Type: Spontaneous
  Country: US (occurrence: US)
  Receive Date: 20240301
  Receipt Date: 20240301
  Transmission Date: 20240410
  Serious: Yes (Hospitalization, Other)
  Sender: FDA-Public Use
  Company Number: US-VIIV HEALTHCARE LIMITED-US2024023892

PATIENT

DRUGS (19)
  1. TIVICAY [Suspect]
     Active Substance: DOLUTEGRAVIR SODIUM
     Indication: HIV infection
     Dosage: 1 DF, QD
     Route: 048
     Dates: start: 201602
  2. EPZICOM [Suspect]
     Active Substance: ABACAVIR SULFATE\LAMIVUDINE
     Indication: HIV infection
     Dosage: 1 DF, QD, ABACAVIR 600 MG/ LAMIVUDINE 300 MG
     Route: 048
  3. TRUVADA [Suspect]
     Active Substance: EMTRICITABINE\TENOFOVIR DISOPROXIL FUMARATE
     Indication: Product used for unknown indication
     Dosage: UNK
     Dates: start: 201602
  4. BETAMETHASONE DIPROPIONATE [Suspect]
     Active Substance: BETAMETHASONE DIPROPIONATE
     Indication: Product used for unknown indication
     Dosage: UNK UNK, BID, APPLY LEFT ANKLE
  5. DICLOFENAC [Suspect]
     Active Substance: DICLOFENAC
     Indication: Product used for unknown indication
     Dosage: 2 G, BID
     Route: 061
  6. HYDROQUINONE [Suspect]
     Active Substance: HYDROQUINONE
     Indication: Product used for unknown indication
     Dosage: UNK UNK, TID, ANKLE
     Route: 061
  7. NICOTINE [Suspect]
     Active Substance: NICOTINE
     Indication: Product used for unknown indication
     Dosage: 14 MG, QD
     Route: 062
     Dates: start: 20230821
  8. NICOTINE [Suspect]
     Active Substance: NICOTINE
     Dosage: 21 MG, QD
     Route: 062
     Dates: start: 20240201
  9. NICOTINE [Suspect]
     Active Substance: NICOTINE
     Dosage: 7 MG, QD
     Route: 062
     Dates: start: 20240211
  10. ROSUVASTATIN [Suspect]
     Active Substance: ROSUVASTATIN
     Indication: Product used for unknown indication
     Dosage: 1 DF, QD
     Route: 048
  11. SODIUM FLUORIDE 5000 PLUS [Suspect]
     Active Substance: SODIUM FLUORIDE
     Indication: Product used for unknown indication
     Dosage: UNK, 1 TO 2 TIMES A DAY
  12. SSD [Suspect]
     Active Substance: SILVER SULFADIAZINE
     Indication: Product used for unknown indication
     Dosage: UNK, BID
     Route: 061
  13. VARENICLINE [Suspect]
     Active Substance: VARENICLINE
     Indication: Product used for unknown indication
     Dosage: 0.5 MG
     Route: 048
  14. VARENICLINE [Suspect]
     Active Substance: VARENICLINE
     Dosage: 1 MG, BID
     Route: 048
  15. COVID-19 VACCINE [Concomitant]
     Indication: Prophylaxis
     Dosage: UNK
     Dates: start: 20210224
  16. MODERNA COVID-19 VACCINE [Concomitant]
     Active Substance: ELASOMERAN
     Indication: Prophylaxis
     Dosage: 0.5 ML
     Dates: start: 20210224
  17. HEPATITIS A VIRUS STRAIN HM175 ANTIGEN (FORMALDEHYDE INACTIVATED) [Concomitant]
     Active Substance: HEPATITIS A VIRUS STRAIN HM175 ANTIGEN (FORMALDEHYDE INACTIVATED)
     Indication: Prophylaxis
     Dosage: UNK
     Dates: start: 20170414
  18. INFLUENZA VIRUS VACCINE [Concomitant]
     Active Substance: INFLUENZA VIRUS VACCINE
     Indication: Prophylaxis
     Dosage: UNK
     Route: 030
     Dates: start: 20161014
  19. PNEUMOCOCCAL VACCINE POLYVALENT [Concomitant]
     Active Substance: PNEUMOCOCCAL VACCINE POLYVALENT
     Indication: Prophylaxis
     Dosage: UNK
     Dates: start: 20170428

REACTIONS (22)
  - Hospitalisation [Unknown]
  - Secondary syphilis [Unknown]
  - Inguinal hernia [Unknown]
  - Carpal tunnel syndrome [Unknown]
  - Herpes virus infection [Unknown]
  - Tinea pedis [Unknown]
  - Dermatitis contact [Unknown]
  - Neck pain [Unknown]
  - Intervertebral disc disorder [Unknown]
  - Radiculopathy [Unknown]
  - Paraesthesia [Unknown]
  - Chest pain [Unknown]
  - Chest discomfort [Unknown]
  - Foot deformity [Unknown]
  - Cellulitis [Unknown]
  - Arthralgia [Unknown]
  - Post procedural infection [Unknown]
  - Muscle strain [Unknown]
  - Pleural mass [Unknown]
  - Rash [Unknown]
  - Exposure to communicable disease [Unknown]
  - Blood calcium increased [Unknown]

NARRATIVE: CASE EVENT DATE: 20201209
